FAERS Safety Report 9953683 (Version 1)
Quarter: 2014Q1

REPORT INFORMATION
  Report Type: Report from Study
  Country: US (occurrence: US)
  Receive Date: 20140304
  Receipt Date: 20140304
  Transmission Date: 20141002
  Serious: No
  Sender: FDA-Public Use
  Company Number: US-ABBVIE-13P-163-1080719-00

PATIENT
  Age: 52 Year
  Sex: Female

DRUGS (15)
  1. HUMIRA [Suspect]
     Indication: COLITIS ULCERATIVE
     Dates: start: 201303, end: 20130419
  2. ASACOL HD [Concomitant]
     Indication: COLITIS ULCERATIVE
  3. NEXIUM [Concomitant]
     Indication: DYSPEPSIA
  4. POTASSIUM [Concomitant]
     Indication: SUPPLEMENTATION THERAPY
     Dosage: 2 PILLS IN AM; 2 PILLS AT HS
  5. FOLIC ACID [Concomitant]
     Indication: PRODUCT USED FOR UNKNOWN INDICATION
     Dosage: FROM ONCOLOGIST
  6. VITAMIN B1 [Concomitant]
     Indication: ANAEMIA
  7. ATENOLOL [Concomitant]
     Indication: HEART RATE
     Dosage: 50/25MG, 1/2 PILL DAILY
  8. CITRACAL D FORT [Concomitant]
     Indication: MUSCULOSKELETAL DISCOMFORT
     Dosage: PILLS
  9. ASACOL [Concomitant]
     Indication: PRODUCT USED FOR UNKNOWN INDICATION
  10. CLARITIN [Concomitant]
     Indication: HYPERSENSITIVITY
  11. VITAMIN D [Concomitant]
     Indication: PRODUCT USED FOR UNKNOWN INDICATION
     Route: 048
  12. UNKNOWN MEDICATION [Concomitant]
     Indication: HEART RATE
  13. UNKNOWN MEDICATION [Concomitant]
     Indication: DIURETIC THERAPY
  14. PREDNISONE [Concomitant]
     Indication: PRODUCT USED FOR UNKNOWN INDICATION
     Dosage: WEANED OFF
  15. PREDNISONE [Concomitant]
     Dosage: FOR 2 MONTHS

REACTIONS (10)
  - Asthenia [Not Recovered/Not Resolved]
  - Abdominal pain [Not Recovered/Not Resolved]
  - Nausea [Not Recovered/Not Resolved]
  - Pain [Not Recovered/Not Resolved]
  - Influenza like illness [Not Recovered/Not Resolved]
  - Diarrhoea [Not Recovered/Not Resolved]
  - Haematochezia [Not Recovered/Not Resolved]
  - Colitis ulcerative [Not Recovered/Not Resolved]
  - Frequent bowel movements [Not Recovered/Not Resolved]
  - Muscle spasms [Not Recovered/Not Resolved]
